FAERS Safety Report 4673374-4 (Version None)
Quarter: 2005Q1

REPORT INFORMATION
  Report Type: 
  Country: None (occurrence: None)
  Receive Date: 20050324
  Receipt Date: 20050324
  Transmission Date: 20050727
  Serious: Yes (Other)
  Sender: FDA-Public Use
  Company Number: None

PATIENT
  Age: 54 Year
  Sex: Female
  Weight: 58.0604 kg

DRUGS (3)
  1. BUDESONIDE [Suspect]
     Indication: ASTHMA
     Dosage: ONE VIAL B.I.D. OTHER
     Dates: start: 20050517, end: 20050518
  2. XOPENEX [Concomitant]
  3. ALBUTEROL [Concomitant]

REACTIONS (7)
  - ASTHMA [None]
  - CONDITION AGGRAVATED [None]
  - DIARRHOEA [None]
  - DYSPNOEA [None]
  - ORAL MUCOSAL BLISTERING [None]
  - PHARMACEUTICAL PRODUCT COMPLAINT [None]
  - PHARYNGOLARYNGEAL PAIN [None]
